FAERS Safety Report 9458833 (Version 2)
Quarter: 2013Q3

REPORT INFORMATION
  Report Type: Spontaneous
  Country: DK (occurrence: CH)
  Receive Date: 20130814
  Receipt Date: 20130829
  Transmission Date: 20140515
  Serious: Yes (Death, Hospitalization)
  Sender: FDA-Public Use
  Company Number: CH-FRI-1000047683

PATIENT
  Age: 44 Year
  Sex: Male
  Weight: 70 kg

DRUGS (13)
  1. ESCITALOPRAM [Suspect]
     Indication: DEPRESSION
     Dosage: 10 MG
     Route: 048
     Dates: start: 20130501, end: 20130512
  2. DABRAFENIB [Suspect]
     Indication: METASTASIS
     Dosage: 300 MG
     Route: 048
     Dates: start: 20130502, end: 20130512
  3. TRAMETINIB [Suspect]
     Indication: NEOPLASM MALIGNANT
     Dosage: 2 MG
     Route: 048
     Dates: start: 20130502, end: 20130512
  4. NOVALGIN [Suspect]
     Indication: BACK PAIN
     Dosage: 2000 MG
     Route: 048
     Dates: start: 20130501, end: 20130512
  5. KEPPRA [Suspect]
     Indication: EPILEPSY
     Dosage: 1000 MG
     Route: 048
     Dates: start: 20130501, end: 20130512
  6. FORTECORTIN [Suspect]
     Indication: BRAIN OEDEMA
     Dosage: LOWER DOSE THAN 12 MG DAILY
     Route: 048
     Dates: start: 2013, end: 2013
  7. FORTECORTIN [Suspect]
     Dosage: 12 MG
     Route: 048
     Dates: start: 2013, end: 20130512
  8. ORFIRIL [Suspect]
     Indication: EPILEPSY
     Dosage: 1200 MG
     Route: 048
     Dates: start: 20121201, end: 20130512
  9. ZELBORAF [Concomitant]
     Dates: start: 20121017, end: 20130116
  10. IPILIMUMAB [Concomitant]
     Dates: start: 20130122, end: 20130122
  11. CISPLATIN [Concomitant]
     Route: 042
  12. TEMODAL [Concomitant]
     Dosage: 300 MG
     Dates: start: 20130222
  13. TEMODAL [Concomitant]
     Dosage: 300 MG
     Dates: start: 20130319

REACTIONS (2)
  - Sudden death [Fatal]
  - Pyrexia [Recovered/Resolved]
